FAERS Safety Report 8874814 (Version 1)
Quarter: 2012Q4

REPORT INFORMATION
  Report Type: 
  Country: DE (occurrence: JP)
  Receive Date: 20121030
  Receipt Date: 20121030
  Transmission Date: 20130627
  Serious: Yes (Hospitalization, Other)
  Sender: FDA-Public Use
  Company Number: JP-BRISTOL-MYERS SQUIBB COMPANY-17057852

PATIENT
  Age: 19 Year
  Sex: Male

DRUGS (3)
  1. METGLUCO [Suspect]
     Indication: TYPE 2 DIABETES MELLITUS
     Dosage: 250 mg, 4 times a day; initiated in Jul-2012
     Route: 048
  2. NOVORAPID [Suspect]
     Indication: TYPE 2 DIABETES MELLITUS
     Dosage: 12 IU(4 IU, 3 in 1 D); initiated in Jul-2012
     Route: 058
  3. LANTUS [Suspect]
     Indication: TYPE 2 DIABETES MELLITUS
     Dosage: 8 IU/day,Subq from Jul-2012
     Route: 058

REACTIONS (4)
  - Hypoglycaemia [Recovered/Resolved]
  - Hypokalaemia [Recovered/Resolved]
  - Hyperlactacidaemia [Recovered/Resolved]
  - Intentional overdose [Unknown]
